FAERS Safety Report 18241755 (Version 1)
Quarter: 2020Q3

REPORT INFORMATION
  Report Type: Spontaneous
  Country: DK (occurrence: DK)
  Receive Date: 20200908
  Receipt Date: 20200908
  Transmission Date: 20201103
  Serious: Yes (Hospitalization)
  Sender: FDA-Public Use
  Company Number: DK-ACCORD-199757

PATIENT
  Age: 79 Year
  Sex: Female

DRUGS (5)
  1. PREDNISOLONE. [Suspect]
     Active Substance: PREDNISOLONE
     Indication: PRODUCT USED FOR UNKNOWN INDICATION
     Dosage: 37.5 MILLIGRAM DAILY;
     Route: 065
  2. METHOTREXATE. [Suspect]
     Active Substance: METHOTREXATE
     Indication: EOSINOPHILIC FASCIITIS
  3. PREDNISOLONE. [Suspect]
     Active Substance: PREDNISOLONE
     Indication: MYOSITIS
     Dosage: 75 MILLIGRAM DAILY;
     Route: 065
  4. PREDNISOLONE. [Suspect]
     Active Substance: PREDNISOLONE
     Indication: EOSINOPHILIC FASCIITIS
     Dosage: 7.5 MILLIGRAM DAILY;
     Route: 065
  5. METHOTREXATE. [Suspect]
     Active Substance: METHOTREXATE
     Indication: MYOSITIS

REACTIONS (5)
  - Off label use [Unknown]
  - Peroneal nerve palsy [Not Recovered/Not Resolved]
  - Herpes zoster [Recovering/Resolving]
  - Rash vesicular [Recovered/Resolved]
  - Varicella zoster virus infection [Recovering/Resolving]
